FAERS Safety Report 20718602 (Version 1)
Quarter: 2022Q2

REPORT INFORMATION
  Report Type: Spontaneous
  Country: US (occurrence: None)
  Receive Date: 20220418
  Receipt Date: 20220418
  Transmission Date: 20220721
  Serious: No
  Sender: FDA-Public Use
  Company Number: US-SUPERNUS Pharmaceuticals, Inc.-SUP202203-000347

PATIENT
  Age: 7 Year

DRUGS (2)
  1. QELBREE [Suspect]
     Active Substance: VILOXAZINE HYDROCHLORIDE
     Indication: Product used for unknown indication
     Dosage: 200MG
  2. CLONIDINE [Concomitant]
     Active Substance: CLONIDINE
     Dosage: NOT PROVIDED

REACTIONS (1)
  - Mania [Unknown]
